FAERS Safety Report 8975883 (Version 7)
Quarter: 2014Q1

REPORT INFORMATION
  Report Type: Report from Study
  Country: CA (occurrence: CA)
  Receive Date: 20121219
  Receipt Date: 20140331
  Transmission Date: 20141002
  Serious: Yes (Hospitalization)
  Sender: FDA-Public Use
  Company Number: CA-JNJFOC-20121207270

PATIENT
  Age: 48 Year
  Sex: Male
  Weight: 84.82 kg

DRUGS (16)
  1. PANTOPRAZOLE [Concomitant]
     Route: 048
  2. METFORMIN [Concomitant]
     Indication: TYPE 2 DIABETES MELLITUS
     Route: 048
  3. IBUPROFEN [Concomitant]
  4. TEMAZEPAM [Concomitant]
     Route: 048
  5. ASA [Concomitant]
     Route: 048
  6. USTEKINUMAB [Suspect]
     Indication: PSORIASIS
     Route: 058
     Dates: start: 20110831, end: 20140115
  7. NITROGLYCERIN [Concomitant]
     Route: 060
  8. PERCOCET [Concomitant]
     Indication: MIGRAINE
     Dosage: 5/325 MG EVERY 4-6 HOURS AS NEEDED
     Route: 048
  9. TYLENOL WITH CODEINE [Concomitant]
     Indication: MIGRAINE
     Route: 048
  10. INSULIN [Concomitant]
     Indication: TYPE 2 DIABETES MELLITUS
  11. ESCITALOPRAM [Concomitant]
     Route: 048
  12. NORTRIPTYLINE [Concomitant]
     Route: 048
  13. ATORVASTATIN [Concomitant]
  14. METOPROLOL [Concomitant]
  15. PERINDOPRIL [Concomitant]
  16. PLAVIX [Concomitant]

REACTIONS (3)
  - Pneumonia [Recovered/Resolved]
  - Left ventricular dysfunction [Unknown]
  - Acute myocardial infarction [Recovered/Resolved]
